FAERS Safety Report 4976179-X (Version None)
Quarter: 2006Q2

REPORT INFORMATION
  Report Type: 
  Country: None (occurrence: None)
  Receive Date: 20060412
  Receipt Date: 20060330
  Transmission Date: 20061013
  Serious: Yes (Other)
  Sender: FDA-Public Use
  Company Number: 2006045793

PATIENT
  Age: 65 Year
  Sex: Female

DRUGS (2)
  1. ZITHROMAX [Suspect]
     Indication: BRONCHITIS
     Dosage: 500 MG (500 MG, DAILY INTERVAL: EVERY DAY), ORAL
     Route: 048
     Dates: start: 20060301, end: 20060324
  2. SALBUTAMOL               (SALBUTAMOL) [Concomitant]

REACTIONS (3)
  - ACNE [None]
  - HYPERSENSITIVITY [None]
  - LARYNGEAL OEDEMA [None]
